FAERS Safety Report 13384766 (Version 1)
Quarter: 2017Q1

REPORT INFORMATION
  Report Type: Spontaneous
  Country: US (occurrence: US)
  Receive Date: 20170329
  Receipt Date: 20170329
  Transmission Date: 20170429
  Serious: Yes (Hospitalization)
  Sender: FDA-Public Use
  Company Number: None

PATIENT
  Age: 88 Year
  Sex: Female
  Weight: 65.25 kg

DRUGS (11)
  1. CALCIUM [Concomitant]
     Active Substance: CALCIUM
  2. PRADAXA [Suspect]
     Active Substance: DABIGATRAN ETEXILATE MESYLATE
     Indication: ANTICOAGULANT THERAPY
     Dosage: ?          QUANTITY:1 CAPSULE(S);?
     Route: 048
     Dates: start: 20170222, end: 20170303
  3. BABYASPIRIN [Concomitant]
  4. HEART PACER [Concomitant]
  5. METOPROLOL TARTRATE. [Concomitant]
     Active Substance: METOPROLOL TARTRATE
  6. PRADAXA [Suspect]
     Active Substance: DABIGATRAN ETEXILATE MESYLATE
     Indication: THROMBOSIS PROPHYLAXIS
     Dosage: ?          QUANTITY:1 CAPSULE(S);?
     Route: 048
     Dates: start: 20170222, end: 20170303
  7. CLODOPRIGREL [Concomitant]
  8. GLUCOSAMINE [Concomitant]
     Active Substance: GLUCOSAMINE
  9. IRON [Concomitant]
     Active Substance: IRON
  10. ATORVASTATIN [Concomitant]
     Active Substance: ATORVASTATIN
  11. PANTOPRAZOLE [Concomitant]
     Active Substance: PANTOPRAZOLE SODIUM

REACTIONS (2)
  - Rectal haemorrhage [None]
  - Gastric disorder [None]

NARRATIVE: CASE EVENT DATE: 20170303
